FAERS Safety Report 4954017-9 (Version None)
Quarter: 2006Q1

REPORT INFORMATION
  Report Type: 
  Country: None (occurrence: None)
  Receive Date: 20060321
  Receipt Date: 20060308
  Transmission Date: 20060701
  Serious: Yes (Hospitalization)
  Sender: FDA-Public Use
  Company Number: 144860USA

PATIENT
  Age: 46 Year
  Sex: Female
  Weight: 87.0906 kg

DRUGS (10)
  1. COPAXONE [Suspect]
     Indication: RELAPSING-REMITTING MULTIPLE SCLEROSIS
     Dosage: 20 MILLIGRAM QD SUBCUTANEOUS
     Route: 058
     Dates: start: 20051219
  2. NEURONTIN [Concomitant]
  3. TRILEPTIC [Concomitant]
  4. TRAMADOL HCL [Concomitant]
  5. CELEXA [Concomitant]
  6. ASPIRIN [Concomitant]
  7. MORPHINE SULFATE [Concomitant]
  8. MECLIZINE [Concomitant]
  9. OCP [Concomitant]
  10. ACTOS [Concomitant]

REACTIONS (3)
  - CHEST PAIN [None]
  - HYPERHIDROSIS [None]
  - MYELOPATHY [None]
